FAERS Safety Report 8266171-4 (Version None)
Quarter: 2012Q2

REPORT INFORMATION
  Report Type: 
  Country: None (occurrence: None)
  Receive Date: 20120406
  Receipt Date: 20120402
  Transmission Date: 20120825
  Serious: Yes (Hospitalization, Other)
  Sender: FDA-Public Use
  Company Number: PHEH2012US004580

PATIENT
  Sex: Female

DRUGS (7)
  1. BACLOFEN [Concomitant]
  2. GILENYA [Suspect]
     Dosage: 0.5 MG, QD
     Route: 048
  3. GILENYA [Suspect]
     Indication: MULTIPLE SCLEROSIS
     Dosage: 0.5 MG, QD
     Route: 048
     Dates: start: 20110927
  4. SIMVASTATIN [Concomitant]
  5. DILAUDID [Concomitant]
     Indication: PAIN
     Dosage: 2 MG, Q6H
     Route: 048
  6. ANTIBIOTICS [Concomitant]
     Route: 042
  7. GLUCOPHAGE [Concomitant]
     Indication: DIABETES MELLITUS

REACTIONS (13)
  - URINARY TRACT INFECTION [None]
  - URINARY INCONTINENCE [None]
  - HEART RATE INCREASED [None]
  - SEPSIS [None]
  - IMMUNODEFICIENCY [None]
  - CELLULITIS [None]
  - PELVIC DISCOMFORT [None]
  - FATIGUE [None]
  - RESPIRATORY RATE INCREASED [None]
  - METABOLIC ENCEPHALOPATHY [None]
  - RENAL FAILURE ACUTE [None]
  - PSEUDOMONAS INFECTION [None]
  - HYPOTENSION [None]
